FAERS Safety Report 25781047 (Version 2)
Quarter: 2025Q3

REPORT INFORMATION
  Report Type: Report from Study
  Country: KR (occurrence: KR)
  Receive Date: 20250909
  Receipt Date: 20250917
  Transmission Date: 20251020
  Serious: Yes (Hospitalization)
  Sender: ABBVIE
  Company Number: KR-ABBVIE-6448473

PATIENT
  Age: 38 Year
  Sex: Female
  Weight: 48 kg

DRUGS (3)
  1. RINVOQ [Suspect]
     Active Substance: UPADACITINIB
     Indication: Crohn^s disease
     Dosage: FORM STRENGTH 45 MG?MODIFIED-RELEASE FILM-COATED TABLET
     Route: 048
     Dates: start: 20250722
  2. RINVOQ [Suspect]
     Active Substance: UPADACITINIB
     Indication: Crohn^s disease
     Dosage: FORM STRENGTH 45 MG?MODIFIED-RELEASE FILM-COATED TABLET
     Route: 048
     Dates: start: 20250428, end: 20250703
  3. ELECTROLYTES NOS\MINERALS [Concomitant]
     Active Substance: ELECTROLYTES NOS\MINERALS
     Indication: Small intestinal perforation
     Route: 042
     Dates: start: 20250704, end: 20250706

REACTIONS (1)
  - Small intestinal perforation [Recovered/Resolved]

NARRATIVE: CASE EVENT DATE: 20250704
